FAERS Safety Report 13384061 (Version 1)
Quarter: 2017Q1

REPORT INFORMATION
  Report Type: Spontaneous
  Country: AU (occurrence: AU)
  Receive Date: 20170329
  Receipt Date: 20170329
  Transmission Date: 20170429
  Serious: Yes (Other)
  Sender: FDA-Public Use
  Company Number: AU-ASTRAZENECA-2017SE32094

PATIENT
  Sex: Female

DRUGS (5)
  1. AUGMENTIN DUO FORTE [Concomitant]
     Active Substance: AMOXICILLIN\CLAVULANATE POTASSIUM
     Indication: LOWER RESPIRATORY TRACT INFECTION
     Dosage: AMOXYCILLIN 875MG AND CALVULANIC ACID 125MG TABLET TWICE DAILY
     Dates: start: 201703
  2. AUGMENTIN DUO FORTE [Concomitant]
     Active Substance: AMOXICILLIN\CLAVULANATE POTASSIUM
     Indication: LUNG INFECTION
     Dosage: AMOXYCILLIN 875MG AND CALVULANIC ACID 125MG TABLET TWICE DAILY
     Dates: start: 201703
  3. BRETARIS GENUAIR [Suspect]
     Active Substance: ACLIDINIUM BROMIDE
     Indication: CHRONIC OBSTRUCTIVE PULMONARY DISEASE
     Route: 055
     Dates: start: 201512
  4. ASMOL [Concomitant]
     Active Substance: ALBUTEROL SULFATE
     Dosage: ONE TO TWO INHALATIONS EVERY HOURS IF NEEDEDY
  5. BREO ELLIPTA [Concomitant]
     Active Substance: FLUTICASONE FUROATE\VILANTEROL TRIFENATATE
     Dosage: 200/25 MCG DAILY

REACTIONS (1)
  - Lung infection [Not Recovered/Not Resolved]
